FAERS Safety Report 5020118-2 (Version None)
Quarter: 2006Q2

REPORT INFORMATION
  Report Type: 
  Country: None (occurrence: None)
  Receive Date: 20060602
  Receipt Date: 20060519
  Transmission Date: 20061013
  Serious: Yes (Death)
  Sender: FDA-Public Use
  Company Number: E2020-00066-SPO-JP

PATIENT
  Age: 84 Year
  Sex: Male

DRUGS (4)
  1. ARICEPT [Suspect]
     Indication: DEMENTIA ALZHEIMER'S TYPE
     Dosage: SEE IMAGE
     Route: 048
     Dates: start: 20060510, end: 20060516
  2. ARICEPT [Suspect]
     Indication: DEMENTIA ALZHEIMER'S TYPE
     Dosage: SEE IMAGE
     Route: 048
     Dates: start: 20060517, end: 20060518
  3. GASMOTIN (MOSAPRIDE CITRATE) [Concomitant]
  4. URSO 250 [Concomitant]

REACTIONS (3)
  - CEREBELLAR HAEMORRHAGE [None]
  - DYSSTASIA [None]
  - VOMITING [None]
